FAERS Safety Report 9877346 (Version 1)
Quarter: 2014Q1

REPORT INFORMATION
  Report Type: Spontaneous
  Country: US (occurrence: US)
  Receive Date: 20140206
  Receipt Date: 20140206
  Transmission Date: 20141002
  Serious: No
  Sender: FDA-Public Use
  Company Number: US-PFIZER INC-2014030202

PATIENT
  Age: 24 Month
  Sex: Male

DRUGS (1)
  1. JUNIOR STRENGTH ADVIL [Suspect]
     Dosage: UNK
     Route: 048
     Dates: start: 20140130

REACTIONS (2)
  - Mydriasis [Unknown]
  - Psychomotor hyperactivity [Unknown]
